FAERS Safety Report 23689858 (Version 4)
Quarter: 2024Q2

REPORT INFORMATION
  Report Type: Report from Study
  Country: US (occurrence: US)
  Receive Date: 20240331
  Receipt Date: 20240615
  Transmission Date: 20240716
  Serious: Yes (Other)
  Sender: FDA-Public Use
  Company Number: US-ABBVIE-5699078

PATIENT
  Age: 71 Year
  Sex: Male

DRUGS (1)
  1. HUMIRA [Suspect]
     Active Substance: ADALIMUMAB
     Indication: Psoriasis
     Dosage: CITARTE FREE
     Route: 058
     Dates: end: 202304

REACTIONS (27)
  - Loss of consciousness [Not Recovered/Not Resolved]
  - Adverse drug reaction [Recovered/Resolved]
  - Psoriasis [Unknown]
  - Ageusia [Not Recovered/Not Resolved]
  - Diabetes mellitus [Not Recovered/Not Resolved]
  - Electric shock sensation [Not Recovered/Not Resolved]
  - Vertigo [Not Recovered/Not Resolved]
  - Pharyngeal swelling [Not Recovered/Not Resolved]
  - Illness [Recovered/Resolved]
  - Illness [Not Recovered/Not Resolved]
  - Insomnia [Unknown]
  - Decreased appetite [Not Recovered/Not Resolved]
  - Pain [Not Recovered/Not Resolved]
  - Sensory disturbance [Not Recovered/Not Resolved]
  - Throat tightness [Unknown]
  - Headache [Unknown]
  - Nasal discomfort [Not Recovered/Not Resolved]
  - Coccydynia [Unknown]
  - Pyrexia [Not Recovered/Not Resolved]
  - Hallucination [Not Recovered/Not Resolved]
  - Hyperhidrosis [Not Recovered/Not Resolved]
  - Swollen tongue [Not Recovered/Not Resolved]
  - Lip swelling [Not Recovered/Not Resolved]
  - Head discomfort [Unknown]
  - Weight increased [Not Recovered/Not Resolved]
  - Nervous system disorder [Not Recovered/Not Resolved]
  - Fear of disease [Not Recovered/Not Resolved]

NARRATIVE: CASE EVENT DATE: 20230401
